FAERS Safety Report 8511811-5 (Version None)
Quarter: 2012Q3

REPORT INFORMATION
  Report Type: 
  Country: None (occurrence: None)
  Receive Date: 20120716
  Receipt Date: 20120711
  Transmission Date: 20120928
  Serious: No
  Sender: FDA-Public Use
  Company Number: US-TEVA-348178USA

PATIENT
  Sex: Female
  Weight: 45.854 kg

DRUGS (4)
  1. LAMICTAL [Concomitant]
     Indication: CONVULSION
  2. VALIUM [Concomitant]
     Indication: MUSCLE SPASMS
  3. PLAN B ONE-STEP [Suspect]
     Indication: POST COITAL CONTRACEPTION
     Dosage: 1.5 MILLIGRAM;
     Route: 048
     Dates: start: 20120711, end: 20120711
  4. LORTAB [Concomitant]
     Indication: PAIN

REACTIONS (5)
  - VOMITING [None]
  - MENSTRUATION IRREGULAR [None]
  - BREAST TENDERNESS [None]
  - FATIGUE [None]
  - ABDOMINAL PAIN LOWER [None]
